FAERS Safety Report 14337641 (Version 36)
Quarter: 2024Q3

REPORT INFORMATION
  Report Type: Spontaneous
  Country: GR (occurrence: GR)
  Receive Date: 20171229
  Receipt Date: 20240913
  Transmission Date: 20241017
  Serious: Yes (Other)
  Sender: MYLAN
  Company Number: GR-ASTRAZENECA-2017SF25111

PATIENT
  Age: 62 Year
  Sex: Female

DRUGS (125)
  1. FULVESTRANT [Suspect]
     Active Substance: FULVESTRANT
     Indication: Breast cancer metastatic
     Dosage: 1 DOSAGE FORM, QD
     Route: 030
     Dates: start: 2009
  2. FULVESTRANT [Suspect]
     Active Substance: FULVESTRANT
     Dosage: 1 DOSAGE FORM, CYCLE
     Route: 030
     Dates: start: 2009
  3. FULVESTRANT [Suspect]
     Active Substance: FULVESTRANT
     Dosage: 1 DF, QD COMBINATION WITH TRASTUZUMAB
     Route: 030
     Dates: start: 2009
  4. FULVESTRANT [Suspect]
     Active Substance: FULVESTRANT
     Dosage: 1 DOSAGE FORM, CYCLE(COMBINATION WITH TRASTUZUMAB)
     Route: 030
     Dates: start: 2009
  5. FULVESTRANT [Suspect]
     Active Substance: FULVESTRANT
     Dosage: UNK UNK, CYCLE(COMBINATION WITH TRASTUZUMAB)
     Route: 030
     Dates: start: 2009
  6. FULVESTRANT [Suspect]
     Active Substance: FULVESTRANT
     Dosage: UNK
     Route: 030
  7. FULVESTRANT [Suspect]
     Active Substance: FULVESTRANT
     Dosage: UNK
     Route: 030
  8. EPIRUBICIN [Suspect]
     Active Substance: EPIRUBICIN
     Indication: Breast cancer metastatic
     Dosage: 1 DOSAGE FORM, QD
     Route: 065
     Dates: start: 2006
  9. EPIRUBICIN [Suspect]
     Active Substance: EPIRUBICIN
     Dosage: 1 DOSAGE FORM, CYCLE
     Route: 065
     Dates: start: 2006
  10. EPIRUBICIN [Suspect]
     Active Substance: EPIRUBICIN
     Dosage: UNK, CYCLE
     Route: 065
     Dates: start: 2006
  11. EPIRUBICIN [Suspect]
     Active Substance: EPIRUBICIN
     Dosage: 1 DOSAGE FORM, CYCLE
     Route: 065
  12. EPIRUBICIN [Suspect]
     Active Substance: EPIRUBICIN
     Dosage: UNK
     Route: 065
  13. CAPECITABINE [Suspect]
     Active Substance: CAPECITABINE
     Indication: Breast cancer metastatic
     Dosage: 1 DOSAGE FORM, CYCLE,COMBINATION WITH TRASTUZUMAB
     Route: 065
     Dates: start: 2009
  14. CAPECITABINE [Suspect]
     Active Substance: CAPECITABINE
     Dosage: 1 DOSAGE FORM, CYCLE,REGIMEN 1 COMBINATION WITH LAPATINIB
     Route: 065
     Dates: start: 2009
  15. CAPECITABINE [Suspect]
     Active Substance: CAPECITABINE
     Dosage: 1 DF, QD COMBINATION WITH CAPECITABINE
     Route: 065
     Dates: start: 2009
  16. CAPECITABINE [Suspect]
     Active Substance: CAPECITABINE
     Dosage: 1 DF, QD
     Route: 065
     Dates: start: 2009
  17. CAPECITABINE [Suspect]
     Active Substance: CAPECITABINE
     Dosage: 1 DOSAGE FORM, CYCLE,COMBINATION WITH TRASTUZUMAB
     Route: 065
  18. CAPECITABINE [Suspect]
     Active Substance: CAPECITABINE
     Dosage: UNK
     Route: 065
  19. CAPECITABINE [Suspect]
     Active Substance: CAPECITABINE
     Dosage: 1 DF, QD COMBINATION WITH TRASTUZUMAB
     Route: 065
     Dates: start: 2009
  20. CAPECITABINE [Suspect]
     Active Substance: CAPECITABINE
     Dosage: UNK, CYCLE(COMBINATION WITH LAPATINIB)
     Route: 065
     Dates: start: 2009
  21. CAPECITABINE [Suspect]
     Active Substance: CAPECITABINE
     Dosage: UNK UNK, CYCLE( COMBINATION WITH TRASTUZUMAB)
     Route: 065
     Dates: start: 2009
  22. CAPECITABINE [Suspect]
     Active Substance: CAPECITABINE
     Dosage: 1 DOSAGE FORM, QD(COMBINATION WITH LAPATINIB)
     Route: 065
     Dates: start: 2009
  23. CARBOPLATIN [Suspect]
     Active Substance: CARBOPLATIN
     Indication: Breast cancer metastatic
     Dosage: 1 DF, QD, COMBINATION WITH TRASTUZUMAB AND GEMCITABINE
     Route: 065
     Dates: start: 2009
  24. CARBOPLATIN [Suspect]
     Active Substance: CARBOPLATIN
     Dosage: 1 DF, QD
     Route: 065
  25. CARBOPLATIN [Suspect]
     Active Substance: CARBOPLATIN
     Dosage: 1 DOSAGE FORM, CYCLE,COMBINATION WITH TRASTUZUMAB AND GEMCITABINE
     Route: 065
     Dates: start: 2009
  26. CARBOPLATIN [Suspect]
     Active Substance: CARBOPLATIN
     Dosage: 1 DF, QD, COMBINATION WITH TRASTUZUMAB AND GEMCITABINE
     Route: 065
  27. CARBOPLATIN [Suspect]
     Active Substance: CARBOPLATIN
     Dosage: 1 DF, QD COMBINATION WITH TRASTUZUMAB AND GEMCITABINE
     Route: 065
     Dates: start: 2009
  28. CARBOPLATIN [Suspect]
     Active Substance: CARBOPLATIN
     Dosage: UNK
     Route: 065
  29. CARBOPLATIN [Suspect]
     Active Substance: CARBOPLATIN
     Dosage: UNK UNK, CYCLE(COMBINATION WITH TRASTUZUMAB AND GEMCITABINE)
     Route: 065
     Dates: start: 2009
  30. METHOTREXATE [Suspect]
     Active Substance: METHOTREXATE
     Indication: Breast cancer metastatic
     Dosage: 1 DOSAGE FORM, QD
     Route: 065
     Dates: start: 2006
  31. METHOTREXATE [Suspect]
     Active Substance: METHOTREXATE
     Dosage: 1 DOSAGE FORM, CYCLE
     Route: 065
     Dates: start: 2006
  32. METHOTREXATE [Suspect]
     Active Substance: METHOTREXATE
     Dosage: UNK UNK, CYCLE
     Route: 065
     Dates: start: 2006
  33. METHOTREXATE [Suspect]
     Active Substance: METHOTREXATE
     Dosage: 1 DOSAGE FORM, CYCLE
     Route: 065
  34. GEMCITABINE [Suspect]
     Active Substance: GEMCITABINE
     Indication: Breast cancer metastatic
     Dosage: 1 DF, QD COMBINATION WITH TRASTUZUMAB AND CARBOPLATIN
     Route: 065
  35. GEMCITABINE [Suspect]
     Active Substance: GEMCITABINE
     Dosage: 1 DF,CYCLE COMBINATION WITH TRASTUZUMAB AND CARBOPLATIN
     Route: 065
     Dates: start: 2009
  36. GEMCITABINE [Suspect]
     Active Substance: GEMCITABINE
     Dosage: UNK UNK, CYCLE( COMBINATION WITH TRASTUZUMAB AND CARBOPLATIN)
     Route: 065
     Dates: start: 2009
  37. GEMCITABINE [Suspect]
     Active Substance: GEMCITABINE
     Dosage: 1 DOSAGE FORM, QD
     Route: 065
     Dates: start: 2009
  38. GEMCITABINE [Suspect]
     Active Substance: GEMCITABINE
     Dosage: 1 DOSAGE FORM, CYCLE,COMBINATION WITH TRASTUZUMAB AND CARBOPLATIN
     Route: 065
  39. TAMOXIFEN [Suspect]
     Active Substance: TAMOXIFEN
     Indication: Breast cancer metastatic
     Dosage: 1 DF, QD, COMBINATION WITH TRASTUZUMAB
     Route: 048
     Dates: start: 2009
  40. TAMOXIFEN [Suspect]
     Active Substance: TAMOXIFEN
     Indication: Recurrent cancer
     Dosage: 1 DOSAGE FORM, CYCLE
     Route: 048
     Dates: start: 2009
  41. TAMOXIFEN [Suspect]
     Active Substance: TAMOXIFEN
     Dosage: 1 DOSAGE FORM, CYCLE,1 DF, QD, COMBINATION WITH TRASTUZUMAB
     Route: 048
  42. TAMOXIFEN [Suspect]
     Active Substance: TAMOXIFEN
     Dosage: UNK
     Route: 048
  43. TAMOXIFEN [Suspect]
     Active Substance: TAMOXIFEN
     Dosage: 1 DF, QD COMBINATION WITH TRASTUZUMAB
     Route: 065
     Dates: start: 2009
  44. TAMOXIFEN [Suspect]
     Active Substance: TAMOXIFEN
     Dosage: UNK, CYCLE(COMBINATION WITH TRASTUZUMAB)
     Route: 065
     Dates: start: 2009
  45. PACLITAXEL [Suspect]
     Active Substance: PACLITAXEL
     Indication: Breast cancer metastatic
     Dosage: 1 DOSAGE FORM, CYCLE
     Route: 065
     Dates: start: 2006
  46. PACLITAXEL [Suspect]
     Active Substance: PACLITAXEL
     Dosage: 1 DOSAGE FORM, QD
     Route: 065
     Dates: start: 2006
  47. PACLITAXEL [Suspect]
     Active Substance: PACLITAXEL
     Dosage: UNK UNK, CYCLE
     Route: 065
     Dates: start: 2006
  48. EXEMESTANE [Suspect]
     Active Substance: EXEMESTANE
     Indication: Breast cancer metastatic
     Dosage: 1 DOSAGE FORM, QD
     Route: 065
     Dates: start: 2009
  49. EXEMESTANE [Suspect]
     Active Substance: EXEMESTANE
     Indication: Recurrent cancer
     Dosage: 1 DF, CYCLE, COMBINATION WITH TRASTUZUMAB AND EVEROLIMUS
     Route: 065
     Dates: start: 2009
  50. EXEMESTANE [Suspect]
     Active Substance: EXEMESTANE
     Dosage: 1 DF, CYCLE
     Route: 065
  51. EXEMESTANE [Suspect]
     Active Substance: EXEMESTANE
     Dosage: UNK, CYCLE,(COMBINATION WITH TRASTZUMAB AND EVEROLIMUS)
     Route: 065
     Dates: start: 2009
  52. EXEMESTANE [Suspect]
     Active Substance: EXEMESTANE
     Dosage: 1 DF, CYCLE
     Route: 065
     Dates: start: 2009
  53. EXEMESTANE [Suspect]
     Active Substance: EXEMESTANE
     Dosage: UNK
     Route: 065
  54. DOCETAXEL [Suspect]
     Active Substance: DOCETAXEL\DOCETAXEL ANHYDROUS
     Indication: Breast cancer metastatic
     Dosage: 1 DF, CYCLE
     Route: 065
     Dates: start: 2009
  55. DOCETAXEL [Suspect]
     Active Substance: DOCETAXEL\DOCETAXEL ANHYDROUS
     Indication: Recurrent cancer
     Dosage: UNK
     Route: 065
  56. DOCETAXEL [Suspect]
     Active Substance: DOCETAXEL\DOCETAXEL ANHYDROUS
     Dosage: 1 DOSAGE FORM, QD
     Route: 065
     Dates: start: 2009
  57. DOCETAXEL [Suspect]
     Active Substance: DOCETAXEL\DOCETAXEL ANHYDROUS
     Dosage: UNK UNK, CYCLE
     Route: 065
     Dates: start: 2009
  58. ERIBULIN [Suspect]
     Active Substance: ERIBULIN
     Indication: Breast cancer metastatic
     Dosage: 1 DOSAGE FORM, QD (1 DF, QD, COMBINATION WITH TRASTUZUMAB
     Route: 042
     Dates: start: 2009
  59. ERIBULIN [Suspect]
     Active Substance: ERIBULIN
     Indication: Recurrent cancer
     Dosage: 1 DOSAGE FORM, CYCLE, COMBINATION WITH TRASTUZUMAB
     Route: 042
     Dates: start: 2009
  60. ERIBULIN [Suspect]
     Active Substance: ERIBULIN
     Dosage: UNK
     Route: 042
  61. ERIBULIN [Suspect]
     Active Substance: ERIBULIN
     Dosage: UNK UNK, CYCLE(COMBINATION WITH TRASTUZUMAB)
     Route: 042
     Dates: start: 2009
  62. EVEROLIMUS [Suspect]
     Active Substance: EVEROLIMUS
     Indication: Breast cancer
     Dosage: UNK
     Route: 065
  63. EVEROLIMUS [Suspect]
     Active Substance: EVEROLIMUS
     Indication: Recurrent cancer
     Dosage: 1 DOSAGE FORM, QD
     Route: 065
  64. EVEROLIMUS [Suspect]
     Active Substance: EVEROLIMUS
     Indication: Prophylaxis against transplant rejection
     Dosage: 1 DF, QD COMBINATION WITH TRASTZUMAB AND EXEMESTANE
     Route: 065
     Dates: start: 2009
  65. EVEROLIMUS [Suspect]
     Active Substance: EVEROLIMUS
     Dosage: 1 DOSAGE FORM, CYCLE(COMBINATION WITH TRASTZUMAB AND EXEMESTANE)
     Route: 065
     Dates: start: 2009
  66. EVEROLIMUS [Suspect]
     Active Substance: EVEROLIMUS
     Dosage: UNK DOSAGE FORM, CYCLE(COMBINATION WITH TRASTZUMAB AND EXEMESTANE)
     Route: 065
     Dates: start: 2009
  67. EVEROLIMUS [Suspect]
     Active Substance: EVEROLIMUS
     Dosage: 1 DOSAGE FORM, CYCLE,COMBINATION WITH TRASTZUMAB AND EXEMESTANE
     Route: 065
  68. VINORELBINE [Suspect]
     Active Substance: VINORELBINE TARTRATE
     Indication: Recurrent cancer
     Dosage: 1 DF, QD COMBINATION WITH TRASTUZUMAB
     Route: 065
  69. VINORELBINE [Suspect]
     Active Substance: VINORELBINE TARTRATE
     Indication: Breast cancer metastatic
     Dosage: 1 DOSAGE FORM, CYCLE, COMBINATION WITH TRASTUZUMAB
     Route: 065
     Dates: start: 2009
  70. VINORELBINE [Suspect]
     Active Substance: VINORELBINE TARTRATE
     Dosage: 1 DF, QD COMBINATION WITH TRASTUZUMAB
     Route: 065
     Dates: start: 2009
  71. VINORELBINE [Suspect]
     Active Substance: VINORELBINE TARTRATE
     Dosage: UNK
     Route: 065
  72. VINORELBINE [Suspect]
     Active Substance: VINORELBINE TARTRATE
     Dosage: 1 DOSAGE FORM, CYCLE(COMBINATION WITH TRASTUZUMAB)
     Route: 065
     Dates: start: 2009
  73. VINORELBINE [Suspect]
     Active Substance: VINORELBINE TARTRATE
     Dosage: UNK, CYCLE(COMBINATION WITH TRASTUZUMAB)
     Route: 065
     Dates: start: 2009
  74. VINORELBINE [Suspect]
     Active Substance: VINORELBINE TARTRATE
     Dosage: 1 DOSAGE FORM, QD
     Route: 065
     Dates: start: 2009
  75. CYCLOPHOSPHAMIDE [Suspect]
     Active Substance: CYCLOPHOSPHAMIDE
     Indication: Breast cancer metastatic
     Dosage: 1 DOSAGE FORM, QD
     Route: 065
     Dates: start: 2006
  76. CYCLOPHOSPHAMIDE [Suspect]
     Active Substance: CYCLOPHOSPHAMIDE
     Dosage: 1 DOSAGE FORM, CYCLE
     Route: 065
     Dates: start: 2006
  77. CYCLOPHOSPHAMIDE [Suspect]
     Active Substance: CYCLOPHOSPHAMIDE
     Dosage: UNK, CYCLE
     Route: 065
     Dates: start: 2006
  78. CYCLOPHOSPHAMIDE [Suspect]
     Active Substance: CYCLOPHOSPHAMIDE
     Dosage: 1 DOSAGE FORM, CYCLE
     Route: 065
  79. LAPATINIB [Suspect]
     Active Substance: LAPATINIB
     Indication: Recurrent cancer
     Dosage: 1 DOSAGE FORM, QD
     Route: 065
     Dates: start: 2009
  80. LAPATINIB [Suspect]
     Active Substance: LAPATINIB
     Indication: Breast cancer metastatic
     Dosage: 1 DF, QD COMBINATION WITH CAPECITABINE
     Route: 065
     Dates: start: 2009
  81. LAPATINIB [Suspect]
     Active Substance: LAPATINIB
     Indication: Metastatic malignant melanoma
     Dosage: 1 DOSAGE FORM, CYCLE (COMBINATION WITH CAPECITABINE)
     Route: 065
     Dates: start: 2009
  82. LAPATINIB [Suspect]
     Active Substance: LAPATINIB
     Dosage: UNK UNK, CYCLE(COMBINATION WITH CAPECITABINE)
     Route: 065
     Dates: start: 2009
  83. LAPATINIB [Suspect]
     Active Substance: LAPATINIB
     Dosage: 1 DOSAGE FORM, CYCLE,COMBINATION WITH TRASTZUMAB AND EXEMESTANE
     Route: 065
  84. LAPATINIB [Suspect]
     Active Substance: LAPATINIB
     Dosage: UNK
     Route: 065
  85. LAPATINIB [Suspect]
     Active Substance: LAPATINIB
     Dosage: UNK
  86. TRASTUZUMAB [Suspect]
     Active Substance: TRASTUZUMAB
     Indication: Breast cancer metastatic
     Dosage: 1, DF, QD COMBINATION WITH FULVESTRANT
     Route: 065
     Dates: start: 2009
  87. TRASTUZUMAB [Suspect]
     Active Substance: TRASTUZUMAB
     Indication: Recurrent cancer
     Dosage: 1 DF, QD COMBINATION WITH TAMOXIFEN
     Route: 065
     Dates: start: 2009
  88. TRASTUZUMAB [Suspect]
     Active Substance: TRASTUZUMAB
     Dosage: 1 DF, QD COMBINATION WITH LIPOSOMAL DOXORUBICIN HCL
     Route: 065
     Dates: start: 2009
  89. TRASTUZUMAB [Suspect]
     Active Substance: TRASTUZUMAB
     Dosage: 1 DF, QD COMBINATION WITH GEMCITABINE AND CARBOPLATIN
     Route: 065
     Dates: start: 2009
  90. TRASTUZUMAB [Suspect]
     Active Substance: TRASTUZUMAB
     Dosage: 1 DF, QD COMBINATION WITH EXEMESTANE AND EVEROLIMUS
     Route: 065
     Dates: start: 2009
  91. TRASTUZUMAB [Suspect]
     Active Substance: TRASTUZUMAB
     Dosage: 1 DF, QD COMBINATION WITH VINORELBINE
     Route: 065
     Dates: start: 2009
  92. TRASTUZUMAB [Suspect]
     Active Substance: TRASTUZUMAB
     Dosage: 1 DF, QD COMBINATION WITH CAPECITABINE
     Route: 065
     Dates: start: 2009
  93. TRASTUZUMAB [Suspect]
     Active Substance: TRASTUZUMAB
     Dosage: 1 DOSAGE FORM, CYCLE(COMBINATION WITH CAPECITABINE)
     Route: 065
     Dates: start: 2009
  94. TRASTUZUMAB [Suspect]
     Active Substance: TRASTUZUMAB
     Dosage: 1 DOSAGE FORM, CYCLE( COMBINATION WITH FULVESTRANT)
     Route: 065
     Dates: start: 2009
  95. TRASTUZUMAB [Suspect]
     Active Substance: TRASTUZUMAB
     Dosage: 1 DOSAGE FORM, CYCLE(COMBINATION WITH VINORELBINE)
     Route: 065
     Dates: start: 2009
  96. TRASTUZUMAB [Suspect]
     Active Substance: TRASTUZUMAB
     Dosage: 1 DOSAGE FORM, CYCLE(COMBINATION WITH GEMCITABINE AND CARBOPLATIN)
     Route: 065
     Dates: start: 2009
  97. TRASTUZUMAB [Suspect]
     Active Substance: TRASTUZUMAB
     Dosage: 1 DOSAGE FORM, CYCLE(COMBINATION WITH EXEMESTANE AND EVEROLIMUS)
     Route: 065
     Dates: start: 2009
  98. TRASTUZUMAB [Suspect]
     Active Substance: TRASTUZUMAB
     Dosage: 1 DOSAGE FORM, CYCLE
     Route: 065
     Dates: start: 2009
  99. TRASTUZUMAB [Suspect]
     Active Substance: TRASTUZUMAB
     Dosage: 1 DOSAGE FORM, CYCLE(COMBINATION WITH ERIBULIN)
     Route: 065
     Dates: start: 2009
  100. TRASTUZUMAB [Suspect]
     Active Substance: TRASTUZUMAB
     Dosage: 1 DOSAGE FORM, CYCLE(COMBINATION WITH LIPOSOMAL DOXORUBICIN HCL)
     Route: 065
     Dates: start: 2009
  101. TRASTUZUMAB [Suspect]
     Active Substance: TRASTUZUMAB
     Dosage: 1 DOSAGE FORM, CYCLE(COMBINATION WITH TAMOXIFEN)
     Route: 065
     Dates: start: 2009
  102. TRASTUZUMAB [Suspect]
     Active Substance: TRASTUZUMAB
     Dosage: UNK, CYCLE
     Route: 065
     Dates: start: 2009
  103. TRASTUZUMAB [Suspect]
     Active Substance: TRASTUZUMAB
     Dosage: UNK, CYCLE(COMBINATION WITH EXEMESTANE AND EVEROLIMUS)
     Route: 065
     Dates: start: 2009
  104. TRASTUZUMAB [Suspect]
     Active Substance: TRASTUZUMAB
     Dosage: UNK, CYCLE(COMBINATION WITH VINORELBINE)
     Route: 065
     Dates: start: 2009
  105. TRASTUZUMAB [Suspect]
     Active Substance: TRASTUZUMAB
     Dosage: UNK, CYCLE(COMBINATION WITH CAPECITABINE)
     Route: 065
     Dates: start: 2009
  106. TRASTUZUMAB [Suspect]
     Active Substance: TRASTUZUMAB
     Dosage: UNK, CYCLE(COMBINATION WITH ERIBULIN)
     Route: 065
     Dates: start: 2009
  107. TRASTUZUMAB [Suspect]
     Active Substance: TRASTUZUMAB
     Dosage: UNK, CYCLE(COMBINATION WITH TAMOXIFEN)
     Route: 065
     Dates: start: 2009
  108. TRASTUZUMAB [Suspect]
     Active Substance: TRASTUZUMAB
     Dosage: UNK, CYCLE(COMBINATION WITH GEMCITABINE AND CARBOPLATIN)
     Route: 065
     Dates: start: 2009
  109. TRASTUZUMAB [Suspect]
     Active Substance: TRASTUZUMAB
     Dosage: UNK, CYCLE(COMBINATION WITH FULVESTRANT)
     Route: 065
     Dates: start: 2009
  110. TRASTUZUMAB [Suspect]
     Active Substance: TRASTUZUMAB
     Dosage: UNK, CYCLE(COMBINATION WITH LIPOSOMAL DOXORUBICIN HCL)
     Route: 065
     Dates: start: 2009
  111. TRASTUZUMAB [Suspect]
     Active Substance: TRASTUZUMAB
     Dosage: 1 DOSAGE FORM, CYCLE, (CYCLIC COMBINATION WITH LIPOSOMAL DOXORUBICIN HCL)
     Route: 065
  112. TRASTUZUMAB [Suspect]
     Active Substance: TRASTUZUMAB
     Dosage: 1 DOSAGE FORM, CYCLE, COMBINATION WITH GEMCITABINE AND CARBOPLATIN
     Route: 065
  113. TRASTUZUMAB [Suspect]
     Active Substance: TRASTUZUMAB
     Dosage: 1 DOSAGE FORM, CYCLE,COMBINATION WITH ERIBULIN
     Route: 065
  114. TRASTUZUMAB [Suspect]
     Active Substance: TRASTUZUMAB
     Dosage: 1 DOSAGE FORM, CYCLE, COMBINATION WITH CAPECITABINE
     Route: 065
  115. TRASTUZUMAB [Suspect]
     Active Substance: TRASTUZUMAB
     Dosage: 1 DOSAGE FORM, CYCLE, COMBINATION WITH EXEMESTANE AND EVEROLIMUS
     Route: 065
  116. TRASTUZUMAB [Suspect]
     Active Substance: TRASTUZUMAB
     Dosage: 1 DOSAGE FORM, CYCLE, COMBINATION WITH CAPECITABINE
     Route: 065
  117. TRASTUZUMAB [Suspect]
     Active Substance: TRASTUZUMAB
     Dosage: UNK
     Route: 065
  118. DOXORUBICIN HYDROCHLORIDE [Suspect]
     Active Substance: DOXORUBICIN HYDROCHLORIDE
     Indication: Breast cancer metastatic
     Dosage: 1 DF, QD COMBINATION WITH TRASTUZUMAB
     Route: 065
     Dates: start: 2009
  119. DOXORUBICIN HYDROCHLORIDE [Suspect]
     Active Substance: DOXORUBICIN HYDROCHLORIDE
     Indication: Recurrent cancer
     Dosage: UNK
     Route: 065
  120. DOXORUBICIN HYDROCHLORIDE [Suspect]
     Active Substance: DOXORUBICIN HYDROCHLORIDE
     Dosage: 1 DOSAGE FORM, CYCLE(COMBINATION WITH TRASTUZUMAB)
     Route: 065
     Dates: start: 2009
  121. DOXORUBICIN HYDROCHLORIDE [Suspect]
     Active Substance: DOXORUBICIN HYDROCHLORIDE
     Dosage: UNK UNK, CYCLE( COMBINATION WITH TRASTUZUMAB)
     Route: 065
     Dates: start: 2009
  122. FLUOROURACIL [Suspect]
     Active Substance: FLUOROURACIL
     Indication: Breast cancer metastatic
     Dosage: 1 DOSAGE FORM, QD
     Route: 065
     Dates: start: 2006
  123. FLUOROURACIL [Suspect]
     Active Substance: FLUOROURACIL
     Dosage: 1 DOSAGE FORM, CYCLE
     Route: 065
     Dates: start: 2006
  124. FLUOROURACIL [Suspect]
     Active Substance: FLUOROURACIL
     Dosage: UNK, CYCLE
     Route: 065
     Dates: start: 2006
  125. CYCLOPHOSPHAMIDE [Suspect]
     Active Substance: CYCLOPHOSPHAMIDE
     Indication: Breast cancer metastatic
     Dosage: UNK
     Route: 065

REACTIONS (8)
  - Metastases to lung [Unknown]
  - Metastases to lymph nodes [Unknown]
  - Malignant neoplasm progression [Unknown]
  - Metastases to skin [Unknown]
  - Metastases to bone [Unknown]
  - Skin mass [Unknown]
  - Recurrent cancer [Unknown]
  - Hormone receptor positive breast cancer [Unknown]

NARRATIVE: CASE EVENT DATE: 20090101
